FAERS Safety Report 20949596 (Version 3)
Quarter: 2022Q2

REPORT INFORMATION
  Report Type: Spontaneous
  Country: US (occurrence: US)
  Receive Date: 20220613
  Receipt Date: 20220624
  Transmission Date: 20220720
  Serious: No
  Sender: FDA-Public Use
  Company Number: US-AMGEN-USASP2022097225

PATIENT
  Sex: Male

DRUGS (1)
  1. NEULASTA [Suspect]
     Active Substance: PEGFILGRASTIM
     Indication: Neutropenia
     Dosage: UNK
     Route: 065

REACTIONS (2)
  - Device use error [Unknown]
  - Accidental exposure to product [Unknown]

NARRATIVE: CASE EVENT DATE: 20220428
